FAERS Safety Report 9620274 (Version 2)
Quarter: 2013Q4

REPORT INFORMATION
  Report Type: Spontaneous
  Country: US (occurrence: US)
  Receive Date: 20131014
  Receipt Date: 20131014
  Transmission Date: 20140711
  Serious: No
  Sender: FDA-Public Use
  Company Number: US-ALLERGAN-1305935US

PATIENT
  Age: 70 Year
  Sex: Male

DRUGS (2)
  1. ALPHAGAN P [Suspect]
     Indication: GLAUCOMA
     Dosage: 2 GTT, TID
     Route: 047
  2. PROLIA INJECTION [Concomitant]
     Indication: BONE DISORDER

REACTIONS (1)
  - Eyelids pruritus [Recovered/Resolved]
